FAERS Safety Report 19677470 (Version 4)
Quarter: 2022Q3

REPORT INFORMATION
  Report Type: Spontaneous
  Country: US (occurrence: None)
  Receive Date: 20210809
  Receipt Date: 20220909
  Transmission Date: 20221027
  Serious: Yes (Death, Other)
  Sender: FDA-Public Use
  Company Number: 2021A668604

PATIENT
  Age: 26100 Day
  Sex: Male
  Weight: 75 kg

DRUGS (45)
  1. PRILOSEC [Suspect]
     Active Substance: OMEPRAZOLE MAGNESIUM
     Indication: Gastrooesophageal reflux disease
     Route: 048
     Dates: start: 2009, end: 2018
  2. PRILOSEC OTC [Suspect]
     Active Substance: OMEPRAZOLE MAGNESIUM
     Indication: Gastrooesophageal reflux disease
     Route: 048
     Dates: start: 2009, end: 2018
  3. ASPIRIN [Concomitant]
     Active Substance: ASPIRIN
     Indication: Anticoagulant therapy
  4. TUMS [Concomitant]
     Active Substance: CALCIUM CARBONATE
     Dosage: 3-4 TABLETS A DAY
     Dates: start: 2000, end: 2019
  5. AMLODIPINE [Concomitant]
     Active Substance: AMLODIPINE BESYLATE
  6. AVODART [Concomitant]
     Active Substance: DUTASTERIDE
  7. CHLORTHALIDONE [Concomitant]
     Active Substance: CHLORTHALIDONE
  8. FENOFIBRATE [Concomitant]
     Active Substance: FENOFIBRATE
  9. APIS MELLIFICA/FUMARIC ACID/MYOSOTIS ARVENSIS/MAGNESIUM PHOSPHATE/OXAL [Concomitant]
  10. LISINOPRIL [Concomitant]
     Active Substance: LISINOPRIL
  11. METOPROLOL SUCCINATE [Concomitant]
     Active Substance: METOPROLOL SUCCINATE
  12. NAICIN [Concomitant]
  13. OMEGA-3 ACIDS [Concomitant]
     Active Substance: OMEGA-3 FATTY ACIDS
  14. SIMVASTATIN [Concomitant]
     Active Substance: SIMVASTATIN
  15. QUINIDINE [Concomitant]
     Active Substance: QUINIDINE
  16. ELIQUIS [Concomitant]
     Active Substance: APIXABAN
  17. CARDIZEM [Concomitant]
     Active Substance: DILTIAZEM HYDROCHLORIDE
  18. LOPRESSOR [Concomitant]
     Active Substance: METOPROLOL TARTRATE
  19. BENZONATATE [Concomitant]
     Active Substance: BENZONATATE
  20. BUDESONIDE\FORMOTEROL [Concomitant]
     Active Substance: BUDESONIDE\FORMOTEROL
  21. CYANOCOBALAMIN [Concomitant]
     Active Substance: CYANOCOBALAMIN
  22. FLUCONAZOLE [Concomitant]
     Active Substance: FLUCONAZOLE
  23. NICOTINE [Concomitant]
     Active Substance: NICOTINE
  24. APIXABAN [Concomitant]
     Active Substance: APIXABAN
  25. QUETIAPINE [Concomitant]
     Active Substance: QUETIAPINE
  26. NITROGLYCERIN [Concomitant]
     Active Substance: NITROGLYCERIN
  27. DIGOXIN [Concomitant]
     Active Substance: DIGOXIN
  28. TAMSULOSIN [Concomitant]
     Active Substance: TAMSULOSIN
  29. METHYLPREDNISOLONE [Concomitant]
     Active Substance: METHYLPREDNISOLONE
  30. DUONEB [Concomitant]
     Active Substance: ALBUTEROL SULFATE\IPRATROPIUM BROMIDE
  31. NIFEDIPINE [Concomitant]
     Active Substance: NIFEDIPINE
  32. GEMFIBROZIL [Concomitant]
     Active Substance: GEMFIBROZIL
  33. ROCEPHIN [Concomitant]
     Active Substance: CEFTRIAXONE SODIUM
  34. FENTANYL [Concomitant]
     Active Substance: FENTANYL
  35. MIDAZOLAM [Concomitant]
     Active Substance: MIDAZOLAM
  36. MUPIROCIN [Concomitant]
     Active Substance: MUPIROCIN
  37. POTASSIUM CHLORIDE [Concomitant]
     Active Substance: POTASSIUM CHLORIDE
  38. PRAVASTATIN [Concomitant]
     Active Substance: PRAVASTATIN
  39. SODIUM CHLORIDE [Concomitant]
     Active Substance: SODIUM CHLORIDE
  40. EPOETIN ALFA [Concomitant]
     Active Substance: ERYTHROPOIETIN
  41. MELATONIN [Concomitant]
     Active Substance: MELATONIN
  42. HALDOL [Concomitant]
     Active Substance: HALOPERIDOL
  43. DEXMEDETOMIDINE [Concomitant]
     Active Substance: DEXMEDETOMIDINE
  44. HEPARIN [Concomitant]
     Active Substance: HEPARIN SODIUM
  45. MAGNESIUM SULFATE [Concomitant]
     Active Substance: MAGNESIUM SULFATE

REACTIONS (8)
  - Cardiogenic shock [Fatal]
  - Cardiomyopathy [Fatal]
  - Chronic kidney disease [Unknown]
  - End stage renal disease [Unknown]
  - Renal failure [Unknown]
  - Acute kidney injury [Unknown]
  - Renal tubular necrosis [Unknown]
  - Nephrogenic anaemia [Unknown]

NARRATIVE: CASE EVENT DATE: 20110816
